FAERS Safety Report 5770396-7 (Version None)
Quarter: 2008Q2

REPORT INFORMATION
  Report Type: 
  Country: None (occurrence: None)
  Receive Date: 20080613
  Receipt Date: 20080502
  Transmission Date: 20081010
  Serious: No
  Sender: FDA-Public Use
  Company Number: US-ABBOTT-08P-163-0450126-00

PATIENT
  Sex: Female
  Weight: 54.48 kg

DRUGS (3)
  1. HUMIRA [Suspect]
     Indication: CROHN'S DISEASE
     Route: 058
     Dates: start: 20080404, end: 20080404
  2. HUMIRA [Suspect]
  3. PREDNISONE TAPER [Concomitant]
     Indication: CROHN'S DISEASE
     Route: 048
     Dates: start: 20080201

REACTIONS (4)
  - AGEUSIA [None]
  - DYSGEUSIA [None]
  - STOMATITIS [None]
  - TONGUE DISORDER [None]
